FAERS Safety Report 21467387 (Version 1)
Quarter: 2022Q4

REPORT INFORMATION
  Report Type: Spontaneous
  Country: US (occurrence: US)
  Receive Date: 20221017
  Receipt Date: 20221017
  Transmission Date: 20230112
  Serious: No
  Sender: FDA-Public Use
  Company Number: US-SA-SAC20221011001537

PATIENT
  Age: 6 Year
  Sex: Male

DRUGS (3)
  1. LUMIZYME [Suspect]
     Active Substance: ALGLUCOSIDASE ALFA
     Indication: Glycogen storage disease type II
     Dosage: 40 MG/KG QW
  2. TYLENOL [Concomitant]
     Active Substance: ACETAMINOPHEN
     Indication: Premedication
  3. ACRIVASTINE [Concomitant]
     Active Substance: ACRIVASTINE
     Indication: Premedication

REACTIONS (6)
  - Muscular weakness [Recovering/Resolving]
  - Gait inability [Recovering/Resolving]
  - Blood creatine phosphokinase increased [Unknown]
  - Rash [Unknown]
  - Pruritus [Unknown]
  - Off label use [Unknown]
